FAERS Safety Report 7242575-3 (Version None)
Quarter: 2010Q4

REPORT INFORMATION
  Report Type: 
  Country: None (occurrence: None)
  Receive Date: 20101130
  Receipt Date: 20100517
  Transmission Date: 20110411
  Serious: Yes (Hospitalization)
  Sender: FDA-Public Use
  Company Number: US201004004432

PATIENT
  Age: 74 Year
  Sex: Female
  Weight: 90.7 kg

DRUGS (6)
  1. BYETTA [Suspect]
     Indication: TYPE 2 DIABETES MELLITUS
     Dosage: 5 UG, 2/D, 10 UG, 2/D
     Dates: start: 20090803, end: 20090902
  2. BYETTA [Suspect]
     Indication: TYPE 2 DIABETES MELLITUS
     Dosage: 5 UG, 2/D, 10 UG, 2/D
     Dates: start: 20090902, end: 20100115
  3. EXENATIDE 5MCG PEN, DISPOSABLE DEVICE (EXENATIDE PEN (5MCG)) [Concomitant]
  4. EXENATIDE 10MCG PEN, DISPOSABLE DEVICE (EXENATIDE PEN (10MCG)) [Concomitant]
  5. LANTUS [Concomitant]
  6. NOVOLOG [Concomitant]

REACTIONS (7)
  - ABDOMINAL PAIN [None]
  - DIARRHOEA [None]
  - DYSURIA [None]
  - LIPASE INCREASED [None]
  - NAUSEA [None]
  - OFF LABEL USE [None]
  - WEIGHT DECREASED [None]
